FAERS Safety Report 9742702 (Version 2)
Quarter: 2013Q4

REPORT INFORMATION
  Report Type: Spontaneous
  Country: US (occurrence: US)
  Receive Date: 20131210
  Receipt Date: 20131210
  Transmission Date: 20140711
  Serious: No
  Sender: FDA-Public Use
  Company Number: US-GILEAD-2009-0025345

PATIENT
  Sex: Female

DRUGS (13)
  1. LETAIRIS [Suspect]
     Indication: PULMONARY ARTERIAL HYPERTENSION
     Route: 048
     Dates: start: 20091020
  2. ADCIRCA [Concomitant]
  3. MOTRIN [Concomitant]
  4. XANAX [Concomitant]
  5. MYLANTA 2 [Concomitant]
  6. LASIX [Concomitant]
  7. LOPRESSOR [Concomitant]
  8. NEURONTIN [Concomitant]
  9. VICODIN [Concomitant]
  10. ADVAIR [Concomitant]
  11. SPIRIVA [Concomitant]
  12. ASPIRIN [Concomitant]
  13. VYTORIN [Concomitant]

REACTIONS (5)
  - Fatigue [Unknown]
  - Dizziness [Unknown]
  - Visual impairment [Unknown]
  - Feeling abnormal [Unknown]
  - Nausea [Unknown]
